FAERS Safety Report 23755676 (Version 1)
Quarter: 2024Q2

REPORT INFORMATION
  Report Type: Spontaneous
  Country: US (occurrence: US)
  Receive Date: 20240418
  Receipt Date: 20240418
  Transmission Date: 20240717
  Serious: Yes (Life-Threatening, Hospitalization, Other)
  Sender: FDA-Public Use
  Company Number: US-MLMSERVICE-20240328-4919163-1

PATIENT
  Age: 68 Year
  Sex: Female

DRUGS (1)
  1. FLECAINIDE [Suspect]
     Active Substance: FLECAINIDE
     Indication: Product used for unknown indication
     Dosage: UNK
     Route: 065

REACTIONS (5)
  - Atrioventricular block first degree [Recovering/Resolving]
  - Sinus bradycardia [Recovering/Resolving]
  - Tachycardia [Recovering/Resolving]
  - Ventricular tachycardia [Recovering/Resolving]
  - Toxicity to various agents [Unknown]
